FAERS Safety Report 17826084 (Version 2)
Quarter: 2020Q2

REPORT INFORMATION
  Report Type: Spontaneous
  Country: US (occurrence: US)
  Receive Date: 20200526
  Receipt Date: 20200604
  Transmission Date: 20200714
  Serious: Yes (Hospitalization)
  Sender: FDA-Public Use
  Company Number: US-PFIZER INC-2018472463

PATIENT
  Age: 54 Year
  Sex: Male
  Weight: 132 kg

DRUGS (3)
  1. LISINOPRIL. [Concomitant]
     Active Substance: LISINOPRIL
     Indication: HYPERTENSION
     Dosage: 20 MG, 1X/DAY
     Route: 048
  2. LYRICA [Suspect]
     Active Substance: PREGABALIN
     Indication: NEUROPATHY PERIPHERAL
     Dosage: 100 MG, 3X/DAY
  3. TRULICITY [Concomitant]
     Active Substance: DULAGLUTIDE
     Indication: DIABETES MELLITUS
     Dosage: 1 DF, WEEKLY (1.5MG/0.5ML 1 SHOT WEEKLY)

REACTIONS (7)
  - Back pain [Not Recovered/Not Resolved]
  - Diabetic ulcer [Recovered/Resolved]
  - Therapeutic product effect incomplete [Unknown]
  - Restless legs syndrome [Unknown]
  - Colitis [Recovered/Resolved]
  - Back injury [Recovered/Resolved with Sequelae]
  - Intentional product use issue [Unknown]
